FAERS Safety Report 18140376 (Version 1)
Quarter: 2020Q3

REPORT INFORMATION
  Report Type: Spontaneous
  Country: TR (occurrence: TR)
  Receive Date: 20200812
  Receipt Date: 20200812
  Transmission Date: 20201103
  Serious: Yes (Death, Other)
  Sender: FDA-Public Use
  Company Number: TR-ADIENNEP-2020AD000402

PATIENT
  Age: 42 Year
  Sex: Female

DRUGS (2)
  1. THIOTEPA. [Suspect]
     Active Substance: THIOTEPA
     Indication: ALLOGENIC STEM CELL TRANSPLANTATION
     Dosage: 275 MG/M2 DAILY
  2. MELPHALAN. [Suspect]
     Active Substance: MELPHALAN
     Indication: ALLOGENIC STEM CELL TRANSPLANTATION
     Dosage: 140 MG/M2 DAILY

REACTIONS (4)
  - Graft versus host disease in liver [Unknown]
  - Sepsis [Fatal]
  - Lower gastrointestinal haemorrhage [Fatal]
  - Graft versus host disease in gastrointestinal tract [Unknown]
